FAERS Safety Report 5598968-3 (Version None)
Quarter: 2008Q1

REPORT INFORMATION
  Report Type: 
  Country: None (occurrence: None)
  Receive Date: 20080122
  Receipt Date: 20080116
  Transmission Date: 20080703
  Serious: Yes (Hospitalization)
  Sender: FDA-Public Use
  Company Number: GB-BOEHRINGER INGELHEIM PHARMACEUTICALS, INC.-2007-DE-06538GD

PATIENT
  Age: 75 Year
  Sex: Male

DRUGS (6)
  1. TIOTROPIUM-BROMIDE [Suspect]
     Indication: CHRONIC OBSTRUCTIVE PULMONARY DISEASE
     Route: 055
     Dates: start: 20031119
  2. PREDNISOLONE [Concomitant]
  3. SALMETEROL XINAFOATE [Concomitant]
  4. ISOSORBIDE DINITRATE [Concomitant]
  5. PERINDOPRIL [Concomitant]
  6. ASPIRIN [Concomitant]

REACTIONS (1)
  - ANGINA UNSTABLE [None]
